FAERS Safety Report 9431557 (Version 1)
Quarter: 2013Q3

REPORT INFORMATION
  Report Type: Spontaneous
  Country: GB (occurrence: GB)
  Receive Date: 20130731
  Receipt Date: 20130731
  Transmission Date: 20140515
  Serious: Yes (Death)
  Sender: FDA-Public Use
  Company Number: PHHY2013GB078239

PATIENT
  Age: 29 Year
  Sex: Female

DRUGS (2)
  1. OXYTOCIN [Suspect]
  2. AMOXICILLIN [Suspect]

REACTIONS (9)
  - Pneumonia streptococcal [Fatal]
  - Streptococcal sepsis [Fatal]
  - Haemoptysis [Fatal]
  - Chest pain [Fatal]
  - Cough [Fatal]
  - Circulatory collapse [Fatal]
  - Respiratory arrest [Fatal]
  - Maternal exposure during pregnancy [Unknown]
  - Normal newborn [Unknown]
